FAERS Safety Report 19991346 (Version 1)
Quarter: 2021Q4

REPORT INFORMATION
  Report Type: Report from Study
  Country: US (occurrence: US)
  Receive Date: 20211025
  Receipt Date: 20211025
  Transmission Date: 20220303
  Serious: No
  Sender: FDA-Public Use
  Company Number: US-NOVARTISTESTPH-NVSC2021US238268

PATIENT

DRUGS (1)
  1. ENTRESTO [Suspect]
     Active Substance: SACUBITRIL\VALSARTAN
     Indication: Product used for unknown indication
     Dosage: UNK UNK, BID
     Route: 048
     Dates: start: 201910

REACTIONS (6)
  - Limb discomfort [Unknown]
  - Blister [Unknown]
  - Wound [Unknown]
  - Pain in extremity [Unknown]
  - Arthritis [Unknown]
  - Peripheral venous disease [Unknown]
